FAERS Safety Report 20430544 (Version 1)
Quarter: 2022Q1

REPORT INFORMATION
  Report Type: Report from Study
  Country: FR (occurrence: FR)
  Receive Date: 20220204
  Receipt Date: 20220204
  Transmission Date: 20220424
  Serious: Yes (Hospitalization)
  Sender: FDA-Public Use
  Company Number: FR-SERVIER-S20010935

PATIENT

DRUGS (5)
  1. PEGASPARGASE [Suspect]
     Active Substance: PEGASPARGASE
     Indication: Acute lymphocytic leukaemia
     Dosage: 1200 IU, (1250 IU/M?/DAY), QD
     Route: 042
     Dates: start: 20180501
  2. TN UNSPECIFIED [Concomitant]
     Indication: Acute lymphocytic leukaemia
     Dosage: 1.4 MG
     Route: 042
     Dates: start: 20180427
  3. TN UNSPECIFIED [Concomitant]
     Indication: Acute lymphocytic leukaemia
     Dosage: 72 MG
     Route: 042
     Dates: start: 20180606
  4. TN UNSPECIFIED [Concomitant]
     Indication: Acute lymphocytic leukaemia
     Dosage: 940 MG
     Route: 042
     Dates: start: 20200604
  5. TN UNSPECIFIED [Concomitant]
     Indication: Acute lymphocytic leukaemia
     Dosage: 57 MG
     Route: 048
     Dates: start: 20200604

REACTIONS (3)
  - Febrile bone marrow aplasia [Recovered/Resolved]
  - Staphylococcus test positive [Recovered/Resolved]
  - Escherichia test positive [Recovered/Resolved]

NARRATIVE: CASE EVENT DATE: 20180705
